FAERS Safety Report 19112528 (Version 1)
Quarter: 2021Q2

REPORT INFORMATION
  Report Type: Spontaneous
  Country: NL (occurrence: NL)
  Receive Date: 20210408
  Receipt Date: 20210408
  Transmission Date: 20210717
  Serious: Yes (Other)
  Sender: FDA-Public Use
  Company Number: NL-TEVA-2021-NL-1898905

PATIENT
  Sex: Female
  Weight: 60 kg

DRUGS (3)
  1. METRONIDAZOL TABLET 500MG / BRAND NAME NOT SPECIFIED [Suspect]
     Active Substance: METRONIDAZOLE
     Indication: HELICOBACTER INFECTION
     Dosage: 1000 MILLIGRAM DAILY; THERAPY END DATE : ASKED BUT UNKNOWN
     Dates: start: 201709
  2. CLARITROMYCINE TABLET 500MG / BRAND NAME NOT SPECIFIED [Concomitant]
     Active Substance: CLARITHROMYCIN
     Dosage: THERAPY START DATE AND END DATE : ASKED BUT UNKNOWN
  3. AMOXICILLINE CAPSULE 500MG / BRAND NAME NOT SPECIFIED [Concomitant]
     Active Substance: AMOXICILLIN
     Dosage: 500 MG (MILLIGRAM) ,THERAPY START DATE AND END DATE : ASKED BUT UNKNOWN

REACTIONS (4)
  - Insomnia [Recovered/Resolved]
  - Pharyngeal swelling [Recovered/Resolved]
  - Hallucination [Recovered/Resolved]
  - Swollen tongue [Recovered/Resolved]
